FAERS Safety Report 9286202 (Version 4)
Quarter: 2013Q2

REPORT INFORMATION
  Report Type: Spontaneous
  Country: TW (occurrence: TW)
  Receive Date: 20130513
  Receipt Date: 20130603
  Transmission Date: 20140414
  Serious: Yes (Death, Hospitalization, Other)
  Sender: FDA-Public Use
  Company Number: TW-ABBOTT-13P-153-1087765-00

PATIENT
  Age: 71 Year
  Sex: Female
  Weight: 48 kg

DRUGS (5)
  1. HUMIRA [Suspect]
     Indication: RHEUMATOID ARTHRITIS
     Route: 058
     Dates: start: 20110809, end: 20130411
  2. HYDROXYCHLOROQUINE SULFATE [Concomitant]
     Indication: RHEUMATOID ARTHRITIS
     Route: 048
     Dates: start: 20130326, end: 20130420
  3. SULFASALAZINE [Concomitant]
     Indication: RHEUMATOID ARTHRITIS
     Route: 048
     Dates: start: 20130326, end: 20130420
  4. NOVONORM [Concomitant]
     Indication: DIABETES MELLITUS
     Route: 048
     Dates: start: 20130411, end: 20130420
  5. ROCURONIUM [Concomitant]
     Indication: PRODUCT USED FOR UNKNOWN INDICATION
     Dosage: 50MG/5ML/VIAL ; 0.5PC/STAT
     Route: 042
     Dates: start: 20130424, end: 20130424

REACTIONS (16)
  - Multi-organ failure [Fatal]
  - Sepsis [Fatal]
  - Plasma cell myeloma [Fatal]
  - Respiratory failure [Fatal]
  - Asthenia [Unknown]
  - Decreased appetite [Unknown]
  - Cough [Unknown]
  - Urine output decreased [Unknown]
  - Oedema peripheral [Unknown]
  - Hyperuricaemia [Unknown]
  - Hypoalbuminaemia [Unknown]
  - Hyperphosphataemia [Unknown]
  - Bone pain [Unknown]
  - Bradycardia [Unknown]
  - Cardiac arrest [Fatal]
  - Blood immunoglobulin G abnormal [Unknown]
